FAERS Safety Report 11261949 (Version 3)
Quarter: 2016Q2

REPORT INFORMATION
  Report Type: Spontaneous
  Country: CN (occurrence: CN)
  Receive Date: 20150710
  Receipt Date: 20160624
  Transmission Date: 20160815
  Serious: Yes (Death, Hospitalization)
  Sender: FDA-Public Use
  Company Number: CN-BAYER-2015-371118

PATIENT
  Age: 61 Year
  Sex: Male

DRUGS (1)
  1. ACETYLSALICYLIC ACID (} 100 MG) [Suspect]
     Active Substance: ASPIRIN
     Indication: PYREXIA
     Dosage: 4 G, UNK
     Route: 048
     Dates: start: 200709

REACTIONS (15)
  - Jaundice cholestatic [Recovered/Resolved]
  - Oliguria [None]
  - Haematemesis [None]
  - Klebsiella test positive [None]
  - Acid base balance abnormal [None]
  - Lung infection [None]
  - Electrolyte imbalance [None]
  - Hepatic failure [Fatal]
  - Hepatitis [None]
  - Intestinal obstruction [None]
  - Peptic ulcer [None]
  - Pancreatitis acute [None]
  - Upper gastrointestinal haemorrhage [None]
  - Hyperglycaemia [None]
  - Overdose [None]

NARRATIVE: CASE EVENT DATE: 2007
